FAERS Safety Report 5476378-7 (Version None)
Quarter: 2007Q4

REPORT INFORMATION
  Report Type: 
  Country: None (occurrence: None)
  Receive Date: 20071003
  Receipt Date: 20070921
  Transmission Date: 20080405
  Serious: Yes (Other)
  Sender: FDA-Public Use
  Company Number: GB-PFIZER INC-2007079432

PATIENT
  Age: 61 Year
  Sex: Female
  Weight: 61 kg

DRUGS (2)
  1. VARENICLINE [Suspect]
     Indication: SMOKING CESSATION THERAPY
     Dates: start: 20070620, end: 20070630
  2. LANSOPRAZOLE [Concomitant]
     Dosage: DAILY DOSE:30MG

REACTIONS (7)
  - DIZZINESS [None]
  - DRY THROAT [None]
  - NAUSEA [None]
  - NIGHTMARE [None]
  - PARAESTHESIA [None]
  - SOMNOLENCE [None]
  - SWELLING FACE [None]
